FAERS Safety Report 14491169 (Version 1)
Quarter: 2018Q1

REPORT INFORMATION
  Report Type: Spontaneous
  Country: US (occurrence: US)
  Receive Date: 20180206
  Receipt Date: 20180206
  Transmission Date: 20180509
  Serious: No
  Sender: FDA-Public Use
  Company Number: US-TARO-2017TAR00132

PATIENT
  Age: 84 Year
  Sex: Female
  Weight: 45.35 kg

DRUGS (14)
  1. XANAX [Concomitant]
     Active Substance: ALPRAZOLAM
     Dosage: 0.5 MG, UP TO 2X/DAY AS NEEDED
  2. METOPROLOL. [Concomitant]
     Active Substance: METOPROLOL
     Dosage: 25 MG, 1X/DAY
  3. MOMETASONE FUROATE CREAM USP 0.1% [Suspect]
     Active Substance: MOMETASONE FUROATE
     Dosage: UNK UNK, 2X/DAY
     Route: 061
     Dates: start: 2017, end: 20170227
  4. ASA [Concomitant]
     Active Substance: ASPIRIN
  5. PREDNISONE. [Concomitant]
     Active Substance: PREDNISONE
     Dosage: UNK
     Dates: start: 20170110, end: 20170115
  6. ^VANIFY^ CREAM [Suspect]
     Active Substance: UNSPECIFIED INGREDIENT
     Dosage: UNK UNK, 2X/DAY
     Dates: start: 2017, end: 20170227
  7. VITAMIN D2 [Concomitant]
     Active Substance: ERGOCALCIFEROL
     Dosage: 2000 IU, 1X/DAY
  8. UNSPECIFIED MULTIVITAMIN [Concomitant]
     Dosage: UNK, 1X/DAY
  9. TYLENOL EXTRA STRENGTH [Concomitant]
     Active Substance: ACETAMINOPHEN
  10. ^VANIFY^ CREAM [Suspect]
     Active Substance: UNSPECIFIED INGREDIENT
     Indication: HYPERSENSITIVITY
     Dosage: UNK UNK, 2X/DAY
     Dates: start: 20170111, end: 20170124
  11. CALCIUM [Concomitant]
     Active Substance: CALCIUM
     Dosage: 1200 MG, 1X/DAY
  12. MOMETASONE FUROATE CREAM USP 0.1% [Suspect]
     Active Substance: MOMETASONE FUROATE
     Indication: HYPERSENSITIVITY
     Dosage: UNK UNK, 2X/DAY
     Route: 061
     Dates: start: 20170111, end: 20170124
  13. LISINOPRIL. [Concomitant]
     Active Substance: LISINOPRIL
     Dosage: 10 MG, 1X/DAY
  14. ZOLPIDEM [Concomitant]
     Active Substance: ZOLPIDEM\ZOLPIDEM TARTRATE
     Dosage: 10 MG, 1X/DAY

REACTIONS (7)
  - Drug ineffective [Not Recovered/Not Resolved]
  - Pain of skin [Not Recovered/Not Resolved]
  - Inappropriate schedule of drug administration [Recovered/Resolved]
  - Product administered at inappropriate site [Recovered/Resolved]
  - Erythema [Not Recovered/Not Resolved]
  - Feeling hot [Not Recovered/Not Resolved]
  - Rash [Not Recovered/Not Resolved]

NARRATIVE: CASE EVENT DATE: 2017
